FAERS Safety Report 20763411 (Version 2)
Quarter: 2022Q2

REPORT INFORMATION
  Report Type: Spontaneous
  Country: CA (occurrence: CA)
  Receive Date: 20220428
  Receipt Date: 20220505
  Transmission Date: 20220721
  Serious: Yes (Hospitalization, Other)
  Sender: FDA-Public Use
  Company Number: CA-JNJFOC-20220445532

PATIENT
  Age: 57 Year
  Sex: Male
  Weight: 87 kg

DRUGS (3)
  1. REMICADE [Suspect]
     Active Substance: INFLIXIMAB
     Indication: Crohn^s disease
     Route: 042
  2. LOPERAMIDE [Concomitant]
     Active Substance: LOPERAMIDE
     Route: 065
  3. TYLENOL [Concomitant]
     Active Substance: ACETAMINOPHEN
     Indication: Pain
     Route: 065

REACTIONS (11)
  - Surgery [Unknown]
  - Stoma creation [Unknown]
  - Fistula [Unknown]
  - Sleep deficit [Unknown]
  - Weight decreased [Unknown]
  - Weight increased [Unknown]
  - Condition aggravated [Unknown]
  - Pruritus [Unknown]
  - Abscess [Unknown]
  - Blood pressure increased [Unknown]
  - Off label use [Unknown]
